FAERS Safety Report 7817486-2 (Version None)
Quarter: 2011Q4

REPORT INFORMATION
  Report Type: 
  Country: None (occurrence: None)
  Receive Date: 20111017
  Receipt Date: 20111010
  Transmission Date: 20120403
  Serious: Yes (Other)
  Sender: FDA-Public Use
  Company Number: US-ROCHE-790286

PATIENT
  Sex: Male
  Weight: 79.45 kg

DRUGS (2)
  1. ACCUTANE [Suspect]
     Route: 065
  2. ACCUTANE [Suspect]
     Indication: ACNE
     Route: 065
     Dates: start: 19950901, end: 19960301

REACTIONS (4)
  - COLITIS ULCERATIVE [None]
  - DEPRESSION [None]
  - IRRITABLE BOWEL SYNDROME [None]
  - INJURY [None]
